FAERS Safety Report 8503508-2 (Version None)
Quarter: 2012Q3

REPORT INFORMATION
  Report Type: 
  Country: None (occurrence: None)
  Receive Date: 20120702
  Receipt Date: 20120615
  Transmission Date: 20120928
  Serious: Yes (Hospitalization, Other)
  Sender: FDA-Public Use
  Company Number: 2012MA007627

PATIENT
  Age: 38 Hour
  Sex: Male
  Weight: 3.5 kg

DRUGS (2)
  1. CLOZAPINE [Suspect]
     Dosage: 50 MG;TID;TRLP
     Route: 064
  2. HALOPERIDOL LACTATE [Suspect]
     Indication: FOETAL EXPOSURE DURING PREGNANCY
     Dosage: 4 MG;TID;TRPL
     Route: 064

REACTIONS (26)
  - VOMITING NEONATAL [None]
  - CYANOSIS NEONATAL [None]
  - POOR SUCKING REFLEX [None]
  - MUSCLE TIGHTNESS [None]
  - ALANINE AMINOTRANSFERASE INCREASED [None]
  - BLOOD LACTATE DEHYDROGENASE INCREASED [None]
  - HAEMOGLOBIN DECREASED [None]
  - ASPARTATE AMINOTRANSFERASE INCREASED [None]
  - PROTEIN TOTAL DECREASED [None]
  - BLOOD BILIRUBIN INCREASED [None]
  - BLOOD ALKALINE PHOSPHATASE INCREASED [None]
  - CONVULSION NEONATAL [None]
  - GAMMA-GLUTAMYLTRANSFERASE INCREASED [None]
  - BLOOD CREATINE PHOSPHOKINASE INCREASED [None]
  - JAUNDICE NEONATAL [None]
  - CONVULSION [None]
  - OEDEMA [None]
  - BLOOD UREA INCREASED [None]
  - BLOOD URIC ACID INCREASED [None]
  - WHITE BLOOD CELL COUNT INCREASED [None]
  - HAEMATOCRIT INCREASED [None]
  - MATERNAL DRUGS AFFECTING FOETUS [None]
  - DYSPHAGIA [None]
  - STARING [None]
  - MUSCLE TWITCHING [None]
  - SWELLING [None]
